FAERS Safety Report 16532346 (Version 2)
Quarter: 2019Q3

REPORT INFORMATION
  Report Type: Spontaneous
  Country: AR (occurrence: AR)
  Receive Date: 20190704
  Receipt Date: 20190729
  Transmission Date: 20191004
  Serious: Yes (Other)
  Sender: FDA-Public Use
  Company Number: AR-PFIZER INC-2019207366

PATIENT
  Age: 77 Year
  Sex: Female

DRUGS (2)
  1. LETROZOL [Concomitant]
     Active Substance: LETROZOLE
     Dosage: UNK
  2. IBRANCE [Suspect]
     Active Substance: PALBOCICLIB
     Indication: BREAST CANCER METASTATIC
     Dosage: 125 MG, CYCLIC (21 DAYS AND TWO WEEKS OFF)
     Dates: start: 20180523

REACTIONS (2)
  - White blood cell count decreased [Unknown]
  - Thrombosis [Unknown]

NARRATIVE: CASE EVENT DATE: 201905
